FAERS Safety Report 14182963 (Version 3)
Quarter: 2017Q4

REPORT INFORMATION
  Report Type: Spontaneous
  Country: US (occurrence: US)
  Receive Date: 20171113
  Receipt Date: 20171130
  Transmission Date: 20180321
  Serious: Yes (Hospitalization, Other)
  Sender: FDA-Public Use
  Company Number: US-GLAXOSMITHKLINE-US2017GSK173061

PATIENT
  Age: 68 Year
  Sex: Female

DRUGS (4)
  1. TRACLEER [Concomitant]
     Active Substance: BOSENTAN
  2. FLOLAN [Suspect]
     Active Substance: EPOPROSTENOL SODIUM
     Indication: PULMONARY HYPERTENSION
     Dosage: UNK
     Dates: start: 20170815
  3. FLOLAN [Suspect]
     Active Substance: EPOPROSTENOL SODIUM
     Indication: PULMONARY HYPERTENSION
     Dosage: 17.8 NG/KG/MIN, CO
     Route: 042
     Dates: start: 20100921
  4. WARFARIN [Concomitant]
     Active Substance: WARFARIN

REACTIONS (5)
  - White blood cell count increased [Unknown]
  - Pneumonia [Unknown]
  - Oxygen saturation decreased [Unknown]
  - Dyspnoea [Unknown]
  - Systemic lupus erythematosus [Unknown]

NARRATIVE: CASE EVENT DATE: 20171107
